FAERS Safety Report 8967068 (Version 2)
Quarter: 2013Q1

REPORT INFORMATION
  Report Type: Spontaneous
  Country: GB (occurrence: GB)
  Receive Date: 20121214
  Receipt Date: 20130117
  Transmission Date: 20140127
  Serious: Yes (Hospitalization, Other)
  Sender: FDA-Public Use
  Company Number: GB-ABBOTT-12P-167-1020556-00

PATIENT
  Age: 28 None
  Sex: Female
  Weight: 95.2 kg

DRUGS (7)
  1. HUMIRA [Suspect]
     Indication: RHEUMATOID ARTHRITIS
     Route: 050
     Dates: start: 201104, end: 20121207
  2. SULPHASALAZINE [Concomitant]
     Indication: RHEUMATOID ARTHRITIS
     Route: 048
  3. DOLFENAL [Concomitant]
     Indication: RHEUMATOID ARTHRITIS
     Route: 048
  4. ACETAZOLAMIDE [Concomitant]
     Indication: INTRACRANIAL PRESSURE INCREASED
     Dates: start: 20121022
  5. DEPO MEDRONE [Concomitant]
     Dosage: 6 MONTHLY AVER LAST 1 YEAR
  6. VENLAFAXINE [Concomitant]
     Indication: DEPRESSION
  7. INDERAL [Concomitant]
     Indication: PRODUCT USED FOR UNKNOWN INDICATION

REACTIONS (2)
  - Intracranial pressure increased [Recovering/Resolving]
  - Papilloedema [Recovering/Resolving]
